FAERS Safety Report 7707540-8 (Version None)
Quarter: 2011Q3

REPORT INFORMATION
  Report Type: 
  Country: None (occurrence: None)
  Receive Date: 20110824
  Receipt Date: 20110822
  Transmission Date: 20111222
  Serious: Yes (Death, Other)
  Sender: FDA-Public Use
  Company Number: US-ELI_LILLY_AND_COMPANY-US201105007512

PATIENT
  Sex: Male
  Weight: 90.249 kg

DRUGS (10)
  1. ZOFRAN [Concomitant]
  2. PROTONIX [Concomitant]
  3. COMPAZINE [Concomitant]
  4. GEMZAR [Suspect]
     Indication: GALLBLADDER CANCER
     Dosage: 2020 MG, WEEKLY (1/W)
     Route: 042
     Dates: start: 20101230
  5. FONDAPARINUX SODIUM [Concomitant]
  6. LORTAB [Concomitant]
  7. XELODA [Concomitant]
  8. DURAGESIC-100 [Concomitant]
  9. HYDROCHLOROTHIAZIDE [Concomitant]
  10. XANAX [Concomitant]

REACTIONS (2)
  - NEOPLASM PROGRESSION [None]
  - MULTI-ORGAN FAILURE [None]
